FAERS Safety Report 8132411-5 (Version None)
Quarter: 2012Q1

REPORT INFORMATION
  Report Type: 
  Country: None (occurrence: None)
  Receive Date: 20120213
  Receipt Date: 20120201
  Transmission Date: 20120608
  Serious: Yes (Hospitalization)
  Sender: FDA-Public Use
  Company Number: SA-ELI_LILLY_AND_COMPANY-SA201202001482

PATIENT
  Age: 73 Year
  Sex: Female

DRUGS (12)
  1. LIPITOR [Concomitant]
  2. NOVORAPID [Concomitant]
  3. FOLIC ACID [Concomitant]
  4. TERIPARATIDE [Suspect]
     Indication: OSTEOPOROSIS
     Dosage: 20 MG, QD
     Route: 058
     Dates: start: 20111129
  5. ASPIRIN [Concomitant]
  6. DISFLATYL [Concomitant]
  7. PLAVIX [Concomitant]
  8. AMLODIPINE BESYLATE [Concomitant]
  9. THEOPHYLLINE [Concomitant]
  10. PANTOPRAZOLE [Concomitant]
     Dosage: 40 MG, UNK
  11. AMYDRAMINE [Concomitant]
  12. SENNALAX                           /00571901/ [Concomitant]

REACTIONS (3)
  - SPEECH DISORDER [None]
  - OVERDOSE [None]
  - HYPERSOMNIA [None]
